FAERS Safety Report 25681856 (Version 1)
Quarter: 2025Q3

REPORT INFORMATION
  Report Type: Spontaneous
  Country: TW (occurrence: TW)
  Receive Date: 20250814
  Receipt Date: 20250814
  Transmission Date: 20251020
  Serious: Yes (Death, Other)
  Sender: NOVARTIS
  Company Number: TW-002147023-NVSC2025TW098992

PATIENT

DRUGS (1)
  1. KYMRIAH [Suspect]
     Active Substance: TISAGENLECLEUCEL
     Indication: Product used for unknown indication
     Route: 042
     Dates: start: 20250618, end: 20250618

REACTIONS (9)
  - Death [Fatal]
  - Multiple organ dysfunction syndrome [Unknown]
  - Cytokine release syndrome [Unknown]
  - Congenital aplasia [Unknown]
  - Cytopenia [Unknown]
  - Swelling face [Unknown]
  - Swelling [Unknown]
  - Pyrexia [Unknown]
  - Infection [Unknown]
